FAERS Safety Report 16326581 (Version 3)
Quarter: 2019Q4

REPORT INFORMATION
  Report Type: Spontaneous
  Country: CN (occurrence: CN)
  Receive Date: 20190517
  Receipt Date: 20191120
  Transmission Date: 20200122
  Serious: Yes (Other)
  Sender: FDA-Public Use
  Company Number: CN-ASTRAZENECA-2019SE72544

PATIENT
  Age: 10922 Day
  Sex: Female
  Weight: 45 kg

DRUGS (4)
  1. TERBUTALINE SULPHATE [Suspect]
     Active Substance: TERBUTALINE SULFATE
     Indication: PNEUMONIA
     Route: 055
     Dates: start: 20190423, end: 20190423
  2. BUDESONIDE. [Suspect]
     Active Substance: BUDESONIDE
     Indication: PNEUMONIA
     Route: 055
     Dates: start: 20190423, end: 20190423
  3. COMPOUND SODIUM CHLORIDE [Concomitant]
     Indication: PNEUMONIA
     Dates: start: 20190423, end: 20190423
  4. SODIUM CHLORIDE. [Concomitant]
     Active Substance: SODIUM CHLORIDE
     Dosage: 1 ML
     Dates: start: 20190423

REACTIONS (8)
  - Dizziness [Recovered/Resolved]
  - Tachycardia [Recovered/Resolved]
  - Chest discomfort [Recovered/Resolved]
  - Dyspnoea [Recovered/Resolved]
  - Throat irritation [Recovered/Resolved]
  - Tremor [Recovered/Resolved]
  - Muscle spasms [Recovered/Resolved]
  - Cough [Recovered/Resolved]

NARRATIVE: CASE EVENT DATE: 20190423
